FAERS Safety Report 4598208-8 (Version None)
Quarter: 2005Q1

REPORT INFORMATION
  Report Type: 
  Country: None (occurrence: None)
  Receive Date: 20050204
  Receipt Date: 20040421
  Transmission Date: 20050727
  Serious: Yes (Hospitalization)
  Sender: FDA-Public Use
  Company Number: PHEH2004US04521

PATIENT
  Age: 47 Year
  Sex: Male

DRUGS (2)
  1. CLOZARIL [Suspect]
     Indication: SCHIZOPHRENIA
     Dosage: 300 MG, BID, ORAL
     Route: 048
  2. SEROQUEL [Concomitant]

REACTIONS (2)
  - CONVULSION [None]
  - RHABDOMYOLYSIS [None]
